FAERS Safety Report 8836260 (Version 1)
Quarter: 2012Q4

REPORT INFORMATION
  Report Type: 
  Country: US (occurrence: US)
  Receive Date: 20121011
  Receipt Date: 20121011
  Transmission Date: 20130627
  Serious: No
  Sender: FDA-Public Use
  Company Number: US-ROCHE-GNE238689

PATIENT
  Age: 7 Year
  Sex: Male
  Weight: 17.25 kg

DRUGS (2)
  1. NUTROPIN AQ [Suspect]
     Indication: GROWTH RETARDATION
     Route: 065
     Dates: start: 2006
  2. NUTROPIN AQ [Suspect]
     Indication: BODY HEIGHT BELOW NORMAL
     Dosage: 1.5 mg, qd
     Route: 058
     Dates: start: 20070112

REACTIONS (3)
  - Chest pain [Not Recovered/Not Resolved]
  - Muscle spasms [Unknown]
  - Injection site pain [Unknown]
